FAERS Safety Report 8977539 (Version 2)
Quarter: 2012Q4

REPORT INFORMATION
  Report Type: 
  Country: JP (occurrence: JP)
  Receive Date: 20121220
  Receipt Date: 20121228
  Transmission Date: 20130627
  Serious: No
  Sender: FDA-Public Use
  Company Number: JP-PFIZER INC-2012262881

PATIENT
  Age: 78 Year
  Sex: Female
  Weight: 48 kg

DRUGS (4)
  1. ZYVOX [Suspect]
     Indication: INFECTION MRSA
     Dosage: 600 mg, 2x/day
     Route: 041
     Dates: start: 20121017, end: 20121029
  2. ZYVOX [Suspect]
     Indication: ENTEROCOCCAL INFECTION
  3. MEROPENEM [Concomitant]
     Dosage: 0.5 g, 4x/day
     Route: 041
     Dates: start: 20121003, end: 20121017
  4. SOLITA T [Concomitant]
     Indication: FLUID REPLACEMENT
     Dosage: 500 mg, 4x/day
     Route: 041
     Dates: start: 20121016, end: 20121019

REACTIONS (1)
  - International normalised ratio increased [Recovering/Resolving]
